FAERS Safety Report 12714197 (Version 4)
Quarter: 2018Q1

REPORT INFORMATION
  Report Type: Spontaneous
  Country: US (occurrence: US)
  Receive Date: 20160905
  Receipt Date: 20180220
  Transmission Date: 20180508
  Serious: Yes (Other)
  Sender: FDA-Public Use
  Company Number: US-PFIZER INC-2016411555

PATIENT
  Age: 69 Year
  Sex: Male
  Weight: 78.91 kg

DRUGS (9)
  1. SILDENAFIL CITRATE. [Suspect]
     Active Substance: SILDENAFIL CITRATE
     Dosage: 40 MG, UNK
  2. SILDENAFIL CITRATE. [Suspect]
     Active Substance: SILDENAFIL CITRATE
     Indication: ERECTILE DYSFUNCTION
     Dosage: 100 MG, AS NEEDED (FIVE 20 MG PILLS ONE HOUR PRIOR TO SEXUAL ACTIVITY)
     Route: 048
  3. WELLBUTRIN [Concomitant]
     Active Substance: BUPROPION HYDROCHLORIDE
     Indication: DEPRESSED MOOD
     Dosage: 200 MG, 2X/DAY [TWO IN THE MORNING AND TWO AT NIGHT]
     Route: 048
  4. SIMVASTATIN. [Concomitant]
     Active Substance: SIMVASTATIN
     Indication: BLOOD CHOLESTEROL ABNORMAL
     Dosage: 20 MG, 1X/DAY [ONCE IN THE EVENING]
     Route: 048
  5. GABAPENTIN. [Concomitant]
     Active Substance: GABAPENTIN
     Indication: MOOD ALTERED
     Dosage: 300 MG, 1X/DAY (IN THE EVENING)
     Route: 048
  6. SILDENAFIL CITRATE. [Suspect]
     Active Substance: SILDENAFIL CITRATE
     Dosage: 60 MG, UNK
  7. LISINOPRIL. [Concomitant]
     Active Substance: LISINOPRIL
     Indication: BLOOD PRESSURE ABNORMAL
     Dosage: 40 MG, 1X/DAY [ONCE IN THE MORNING]
     Route: 048
  8. DEXTROAMPHETAMINE. [Concomitant]
     Active Substance: DEXTROAMPHETAMINE
     Indication: MOOD ALTERED
     Dosage: 10 MG, 1X/DAY [ONCE IN THE MORNING]
     Route: 048
  9. ATENOLOL. [Concomitant]
     Active Substance: ATENOLOL
     Indication: BLOOD PRESSURE ABNORMAL
     Dosage: 25 MG, 1X/DAY [ONE IN THE EVENING]
     Route: 048

REACTIONS (5)
  - Product use in unapproved indication [Unknown]
  - Fracture of penis [Unknown]
  - Stress [Unknown]
  - Drug effect prolonged [Unknown]
  - Amnesia [Unknown]

NARRATIVE: CASE EVENT DATE: 201403
